FAERS Safety Report 6974638-1 (Version None)
Quarter: 2010Q3

REPORT INFORMATION
  Report Type: 
  Country: None (occurrence: None)
  Receive Date: 20100909
  Receipt Date: 20081205
  Transmission Date: 20110219
  Serious: No
  Sender: FDA-Public Use
  Company Number: US-WYE-H06817108

PATIENT
  Age: 49 Year
  Sex: Female
  Weight: 55.39 kg

DRUGS (6)
  1. PRISTIQ [Suspect]
     Indication: DEPRESSION
     Route: 048
     Dates: start: 20081030, end: 20081125
  2. TRAZODONE HCL [Concomitant]
  3. CLONAZEPAM [Concomitant]
  4. REMERON [Concomitant]
  5. LISINOPRIL [Concomitant]
  6. AMBIEN [Concomitant]

REACTIONS (2)
  - DRUG EFFECT DECREASED [None]
  - WEIGHT DECREASED [None]
